FAERS Safety Report 9767729 (Version 2)
Quarter: 2013Q4

REPORT INFORMATION
  Report Type: Report from Study
  Country: JP (occurrence: JP)
  Receive Date: 20131217
  Receipt Date: 20131218
  Transmission Date: 20140711
  Serious: Yes (Hospitalization)
  Sender: FDA-Public Use
  Company Number: JP-JNJFOC-20131206650

PATIENT
  Age: 48 Year
  Sex: Female
  Weight: 93 kg

DRUGS (22)
  1. INFLIXIMAB, RECOMBINANT [Suspect]
     Indication: BEHCET^S SYNDROME
     Route: 042
     Dates: start: 20130423
  2. PREDNISOLONE [Suspect]
     Indication: BEHCET^S SYNDROME
     Route: 048
     Dates: start: 20120410
  3. COLCHICINE [Concomitant]
     Indication: BEHCET^S SYNDROME
     Route: 048
     Dates: start: 20130926
  4. WYPAX [Concomitant]
     Indication: MENOPAUSAL SYMPTOMS
     Route: 048
     Dates: start: 20110929
  5. MYSLEE [Concomitant]
     Indication: MENOPAUSAL SYMPTOMS
     Route: 048
     Dates: start: 20110929
  6. LUMIGAN [Concomitant]
     Indication: GLAUCOMA
     Dosage: DOSE: ADEQUATE AMOUNT
     Route: 050
     Dates: start: 20121202
  7. GRANDAXIN [Concomitant]
     Indication: MENOPAUSAL SYMPTOMS
     Route: 048
     Dates: start: 20120301
  8. RHEUMATREX [Concomitant]
     Indication: BEHCET^S SYNDROME
     Dosage: DOSE: 12 MG/W
     Route: 048
     Dates: start: 20120410
  9. AZOPT [Concomitant]
     Indication: GLAUCOMA
     Dosage: DOSE: ADEQUATE AMOUNT
     Route: 050
     Dates: start: 20120510
  10. SILECE [Concomitant]
     Indication: MENOPAUSAL SYMPTOMS
     Route: 048
     Dates: start: 20120614
  11. ZOMIG [Concomitant]
     Indication: MENOPAUSAL SYMPTOMS
     Route: 048
     Dates: start: 20120809
  12. PENTASA [Concomitant]
     Indication: BEHCET^S SYNDROME
     Route: 048
     Dates: start: 201208, end: 20130603
  13. ADOAIR [Concomitant]
     Indication: ASTHMA
     Route: 055
     Dates: start: 20121206
  14. CLEANAL [Concomitant]
     Indication: ASTHMA
     Route: 048
     Dates: start: 20121206
  15. LOXONIN [Concomitant]
     Indication: BEHCET^S SYNDROME
     Route: 047
     Dates: start: 20130110
  16. HYALEIN [Concomitant]
     Indication: DRY EYE
     Dosage: DOSE: ADEQUATE AMOUNT
     Route: 050
     Dates: start: 20130307
  17. PURSENNIDE [Concomitant]
     Indication: CONSTIPATION PROPHYLAXIS
     Route: 048
     Dates: start: 20130312
  18. AMLODIPINE [Concomitant]
     Indication: HYPERTENSION
     Route: 048
     Dates: start: 20130424
  19. JUZENTAIHOTO [Concomitant]
     Indication: MENOPAUSAL SYMPTOMS
     Route: 048
     Dates: start: 20130516
  20. DIHYDROCODEINE PHOSPHATE [Concomitant]
     Indication: BEHCET^S SYNDROME
     Route: 048
     Dates: start: 20131015
  21. CRAVIT [Concomitant]
     Indication: INFECTION PROPHYLAXIS
     Dosage: DOSE: ADEQUATE AMOUNT
     Route: 050
     Dates: start: 20131128
  22. NEXIUM [Concomitant]
     Indication: GASTRITIS PROPHYLAXIS
     Route: 048
     Dates: start: 20131204

REACTIONS (1)
  - Cataract [Not Recovered/Not Resolved]
